FAERS Safety Report 13667758 (Version 1)
Quarter: 2017Q2

REPORT INFORMATION
  Report Type: Spontaneous
  Country: US (occurrence: US)
  Receive Date: 20170619
  Receipt Date: 20170619
  Transmission Date: 20170830
  Serious: No
  Sender: FDA-Public Use
  Company Number: None

PATIENT
  Age: 36 Year
  Sex: Female
  Weight: 93.44 kg

DRUGS (1)
  1. BUPRENORPHINE AND NALOXONE [Suspect]
     Active Substance: BUPRENORPHINE\NALOXONE
     Indication: DRUG USE DISORDER
     Dosage: 8 M/G 2X ORAL
     Route: 048
     Dates: start: 20170510, end: 20170517

REACTIONS (8)
  - Anxiety [None]
  - Hypersensitivity [None]
  - Urticaria [None]
  - Nausea [None]
  - Vomiting [None]
  - Glossodynia [None]
  - Rash [None]
  - Headache [None]

NARRATIVE: CASE EVENT DATE: 20170510
